FAERS Safety Report 17285910 (Version 1)
Quarter: 2020Q1

REPORT INFORMATION
  Report Type: Spontaneous
  Country: US (occurrence: US)
  Receive Date: 20200118
  Receipt Date: 20200118
  Transmission Date: 20200409
  Serious: Yes (Other)
  Sender: FDA-Public Use
  Company Number: US-DRREDDYS-USA/USA/20/0118715

PATIENT
  Age: 81 Year
  Sex: Female

DRUGS (2)
  1. CEFTRIAXONE. [Suspect]
     Active Substance: CEFTRIAXONE
     Indication: ARTHRITIS INFECTIVE
  2. DAPTOMYCIN FOR INJECTION [Suspect]
     Active Substance: DAPTOMYCIN
     Indication: ARTHRITIS INFECTIVE
     Route: 042

REACTIONS (2)
  - Eosinophilic pneumonia acute [Recovered/Resolved]
  - Sinus tachycardia [Recovered/Resolved]
